FAERS Safety Report 8985831 (Version 1)
Quarter: 2012Q4

REPORT INFORMATION
  Report Type: 
  Country: BR (occurrence: BR)
  Receive Date: 20121226
  Receipt Date: 20121226
  Transmission Date: 20130627
  Serious: Yes (Other)
  Sender: FDA-Public Use
  Company Number: BR-ABBOTT-12P-020-1025400-00

PATIENT
  Age: 33 Year
  Sex: Female
  Weight: 60 kg

DRUGS (4)
  1. HUMIRA [Suspect]
     Indication: CROHN^S DISEASE
     Dosage: week 0
     Route: 058
     Dates: start: 20111201
  2. HUMIRA [Suspect]
     Dosage: week 2
     Route: 058
  3. HUMIRA [Suspect]
     Route: 058
  4. AZATHIOPRINE [Concomitant]
     Indication: CROHN^S DISEASE
     Route: 048
     Dates: start: 2005

REACTIONS (3)
  - Fistula [Unknown]
  - Haemorrhage [Not Recovered/Not Resolved]
  - Injection site pain [Unknown]
